FAERS Safety Report 12908779 (Version 7)
Quarter: 2020Q2

REPORT INFORMATION
  Report Type: Spontaneous
  Country: CA (occurrence: CA)
  Receive Date: 20161103
  Receipt Date: 20200609
  Transmission Date: 20200713
  Serious: Yes (Life-Threatening, Hospitalization, Other)
  Sender: FDA-Public Use
  Company Number: CA-BAXALTA-2016BLT007821

PATIENT

DRUGS (74)
  1. HUMAN NORMAL IMMUNOGLOBULIN [Suspect]
     Active Substance: HUMAN IMMUNOGLOBULIN G
     Indication: OFF LABEL USE
     Dosage: 70 GRAM, UNKNOWN
     Route: 042
  2. ENBREL [Suspect]
     Active Substance: ETANERCEPT
     Indication: JUVENILE IDIOPATHIC ARTHRITIS
     Dosage: 25 MG, 2X A WEEK
     Route: 058
  3. ENBREL [Suspect]
     Active Substance: ETANERCEPT
     Dosage: 25 MILLIGRAM, UNKNOWN
     Route: 058
  4. INFLIXIMAB [Suspect]
     Active Substance: INFLIXIMAB
     Dosage: UNK
     Route: 042
  5. INFLIXIMAB [Suspect]
     Active Substance: INFLIXIMAB
     Dosage: 1 DOSAGE FORM, 1X/DAY:QD
     Route: 065
  6. METHOTREXATE. [Suspect]
     Active Substance: METHOTREXATE
     Dosage: 15 MILLIGRAM, 1X/2WKS
     Route: 058
  7. TRIAMCINOLONE [Suspect]
     Active Substance: TRIAMCINOLONE
     Indication: RHEUMATOID ARTHRITIS
     Dosage: SPRAY METERED DOSE
     Route: 065
  8. ACTEMRA [Suspect]
     Active Substance: TOCILIZUMAB
     Indication: JUVENILE IDIOPATHIC ARTHRITIS
     Dosage: 280 MILLIGRAM, UNKNOWN
     Route: 042
  9. ACTEMRA [Suspect]
     Active Substance: TOCILIZUMAB
     Indication: STILL^S DISEASE
     Dosage: 280 MILLIGRAM, 1X/WEEK
     Route: 042
  10. ABATACEPT [Suspect]
     Active Substance: ABATACEPT
     Indication: RHEUMATOID ARTHRITIS
     Dosage: 200 MG, 1X A MONTH
     Route: 042
  11. ANAKINRA [Suspect]
     Active Substance: ANAKINRA
     Dosage: UNK
     Route: 058
  12. APO-NAPROXEN [Suspect]
     Active Substance: NAPROXEN
     Indication: JUVENILE IDIOPATHIC ARTHRITIS
  13. APO-PREDNISONE [Suspect]
     Active Substance: PREDNISONE
     Indication: RHEUMATOID ARTHRITIS
     Dosage: 50 MG, TABLET
     Route: 048
  14. TOCILIZUMAB. [Suspect]
     Active Substance: TOCILIZUMAB
     Indication: RHEUMATOID ARTHRITIS
     Dosage: 280 MG, 2X A WEEK
     Route: 042
  15. NAPROXEN. [Suspect]
     Active Substance: NAPROXEN
     Indication: JUVENILE IDIOPATHIC ARTHRITIS
     Dosage: UNK
     Route: 065
  16. ORENCIA [Suspect]
     Active Substance: ABATACEPT
     Dosage: 250 MILLIGRAM, 1X A MONTH
     Route: 042
  17. ORENCIA [Suspect]
     Active Substance: ABATACEPT
     Dosage: 250 MILLIGRAM, 1X A MONTH
  18. HUMAN NORMAL IMMUNOGLOBULIN [Suspect]
     Active Substance: HUMAN IMMUNOGLOBULIN G
     Dosage: 70 GRAM, UNKNOWN
     Route: 042
  19. ANAKINRA [Suspect]
     Active Substance: ANAKINRA
     Dosage: 50 MILLIGRAM, 1X/DAY:QD
     Route: 058
  20. ENBREL [Suspect]
     Active Substance: ETANERCEPT
     Indication: RHEUMATOID ARTHRITIS
     Dosage: 25 MILLIGRAM, UNKNOWN
     Route: 058
  21. ENBREL [Suspect]
     Active Substance: ETANERCEPT
     Dosage: 25 MILLIGRAM, 1X/WEEK
     Route: 058
  22. INFLIXIMAB [Suspect]
     Active Substance: INFLIXIMAB
     Indication: RHEUMATOID ARTHRITIS
     Dosage: 3.0 MG/KG, EVERY 6 WK
     Route: 042
  23. INFLIXIMAB [Suspect]
     Active Substance: INFLIXIMAB
     Dosage: 3 MILLIGRAM/KILOGRAM, 1X/WEEK
     Route: 042
  24. METHOTREXATE. [Suspect]
     Active Substance: METHOTREXATE
     Dosage: UNK
     Route: 065
  25. METHOTREXATE. [Suspect]
     Active Substance: METHOTREXATE
     Dosage: 4 DOSAGE FORM, 1X/WEEK
     Route: 058
  26. TOCILIZUMAB. [Suspect]
     Active Substance: TOCILIZUMAB
     Indication: JUVENILE IDIOPATHIC ARTHRITIS
  27. PREDNISONE. [Suspect]
     Active Substance: PREDNISONE
     Dosage: 50 MILLIGRAM, 2X/DAY:BID
     Route: 048
  28. ETANERCEPT [Suspect]
     Active Substance: ETANERCEPT
     Dosage: 25 MILLIGRAM, 2X A WEEK
     Route: 058
  29. HUMAN NORMAL IMMUNOGLOBULIN [Suspect]
     Active Substance: HUMAN IMMUNOGLOBULIN G
     Indication: RHEUMATOID ARTHRITIS
     Dosage: UNK
     Route: 042
  30. ADALIMUMAB [Suspect]
     Active Substance: ADALIMUMAB
     Indication: RHEUMATOID ARTHRITIS
     Dosage: UNK
     Route: 065
  31. ENBREL [Suspect]
     Active Substance: ETANERCEPT
     Dosage: 25 MILLIGRAM, 1X/2WKS
     Route: 058
  32. ENBREL [Suspect]
     Active Substance: ETANERCEPT
     Dosage: 4 DOSAGE FORM, 1X/WEEK
     Route: 058
  33. INFLIXIMAB [Suspect]
     Active Substance: INFLIXIMAB
     Indication: JUVENILE IDIOPATHIC ARTHRITIS
     Dosage: 3 MILLIGRAM/KILOGRAM, UNKNOWN
     Route: 042
  34. METHOTREXATE. [Suspect]
     Active Substance: METHOTREXATE
     Dosage: 15 MG/M2, 1X A WEEK
     Route: 065
  35. APO-NAPROXEN [Suspect]
     Active Substance: NAPROXEN
     Indication: RHEUMATOID ARTHRITIS
     Dosage: UNK
     Route: 065
  36. APO-PREDNISONE [Suspect]
     Active Substance: PREDNISONE
     Indication: JUVENILE IDIOPATHIC ARTHRITIS
     Dosage: 1.3 MILLIGRAM, 2X/DAY:BID
     Route: 048
  37. APO-PREDNISONE [Suspect]
     Active Substance: PREDNISONE
     Dosage: 3 MILLIGRAM, 2X/DAY:BID
     Route: 048
  38. SULFASALAZINE. [Suspect]
     Active Substance: SULFASALAZINE
     Indication: JUVENILE IDIOPATHIC ARTHRITIS
     Dosage: 1 DOSAGE FORM
     Route: 048
  39. ACTEMRA [Suspect]
     Active Substance: TOCILIZUMAB
     Dosage: 280 MILLIGRAM, 1X/2WKS
     Route: 042
  40. ACTEMRA [Suspect]
     Active Substance: TOCILIZUMAB
     Dosage: 1 DOSAGE FORM, 1X/2WKS
     Route: 042
  41. ORENCIA [Suspect]
     Active Substance: ABATACEPT
     Indication: JUVENILE IDIOPATHIC ARTHRITIS
     Dosage: 250 MILLIGRAM, 1 EVERY 2 MONTHS
     Route: 042
  42. TRIAMCINOLONE ACETONIDE. [Suspect]
     Active Substance: TRIAMCINOLONE ACETONIDE
     Indication: RHEUMATOID ARTHRITIS
     Dosage: UNK
     Route: 014
  43. ANAKINRA [Suspect]
     Active Substance: ANAKINRA
     Indication: RHEUMATOID ARTHRITIS
     Dosage: UNK
     Route: 058
  44. ENBREL [Suspect]
     Active Substance: ETANERCEPT
     Dosage: 12.5 MG, 1X A WEEK
     Route: 058
  45. HYDROXYCHLOROQUINE [Suspect]
     Active Substance: HYDROXYCHLOROQUINE
     Dosage: 1 DOSAGE FORM, 1X/DAY:QD
     Route: 048
  46. INFLIXIMAB [Suspect]
     Active Substance: INFLIXIMAB
     Dosage: 5 MILLIGRAM, UNKNOWN
     Route: 042
  47. METHOTREXATE. [Suspect]
     Active Substance: METHOTREXATE
     Dosage: UNK
     Route: 058
  48. SULFASALAZINE. [Suspect]
     Active Substance: SULFASALAZINE
     Indication: RHEUMATOID ARTHRITIS
     Dosage: 250 MG, 1X A DAY
     Route: 048
  49. ORENCIA [Suspect]
     Active Substance: ABATACEPT
     Dosage: 1 DOSAGE FORM, 1X A MONTH
     Route: 042
  50. PREDNISONE. [Suspect]
     Active Substance: PREDNISONE
     Dosage: 3 MILLIGRAM, 2X/DAY:BID
     Route: 048
  51. TRIAMCINOLONE ACETONIDE. [Suspect]
     Active Substance: TRIAMCINOLONE ACETONIDE
     Indication: JUVENILE IDIOPATHIC ARTHRITIS
     Dosage: UNK
     Route: 065
  52. ANAKINRA [Suspect]
     Active Substance: ANAKINRA
     Dosage: 1 DOSAGE FORM, 1X/DAY:QD
     Route: 058
  53. INFLIXIMAB [Suspect]
     Active Substance: INFLIXIMAB
     Dosage: UNK UNK, EVERY 6 WK
     Route: 042
  54. METHOTREXATE. [Suspect]
     Active Substance: METHOTREXATE
     Indication: RHEUMATOID ARTHRITIS
     Dosage: 15 MG/M2, 1X A WEEK
     Route: 065
  55. METHOTREXATE. [Suspect]
     Active Substance: METHOTREXATE
     Indication: JUVENILE IDIOPATHIC ARTHRITIS
     Dosage: UNK UNK, 1X/WEEK
     Route: 058
  56. APO-PREDNISONE [Suspect]
     Active Substance: PREDNISONE
     Dosage: 5 MILLIGRAM, 2X/DAY:BID
     Route: 048
  57. ORENCIA [Suspect]
     Active Substance: ABATACEPT
     Dosage: 250 MILLIGRAM, 1X A MONTH
     Route: 042
  58. PREDNISONE. [Suspect]
     Active Substance: PREDNISONE
     Dosage: 1.3 MILLIGRAM, 2X/DAY:BID
     Route: 048
  59. ETANERCEPT [Suspect]
     Active Substance: ETANERCEPT
     Indication: PRODUCT USED FOR UNKNOWN INDICATION
     Dosage: 12.5 MILLIGRAM, 1X/WEEK
     Route: 058
  60. ANAKINRA [Suspect]
     Active Substance: ANAKINRA
     Indication: JUVENILE IDIOPATHIC ARTHRITIS
     Dosage: 50 MILLIGRAM, UNKNOWN
     Route: 065
  61. ANAKINRA [Suspect]
     Active Substance: ANAKINRA
     Dosage: 50 MILLIGRAM, 1X/WEEK
     Route: 058
  62. HYDROXYCHLOROQUINE [Suspect]
     Active Substance: HYDROXYCHLOROQUINE
     Indication: JUVENILE IDIOPATHIC ARTHRITIS
     Dosage: 5 MILLIGRAM, 1X/DAY:QD
     Route: 048
  63. ACTEMRA [Suspect]
     Active Substance: TOCILIZUMAB
     Dosage: 280 MILLIGRAM, UNKNOWN
     Route: 042
  64. PREDNISONE. [Suspect]
     Active Substance: PREDNISONE
     Indication: JUVENILE IDIOPATHIC ARTHRITIS
     Dosage: 50 MILLIGRAM
     Route: 065
  65. PREDNISONE. [Suspect]
     Active Substance: PREDNISONE
     Dosage: UNK
     Route: 065
  66. PREDNISONE. [Suspect]
     Active Substance: PREDNISONE
     Dosage: 1.3 MILLIGRAM, 2X/DAY:BID
     Route: 048
  67. PREDNISONE. [Suspect]
     Active Substance: PREDNISONE
     Dosage: 2 DOSAGE FORM, 1X/DAY:QD
     Route: 048
  68. FOLIC ACID. [Concomitant]
     Active Substance: FOLIC ACID
     Indication: PRODUCT USED FOR UNKNOWN INDICATION
  69. HUMAN NORMAL IMMUNOGLOBULIN [Suspect]
     Active Substance: HUMAN IMMUNOGLOBULIN G
     Indication: JUVENILE IDIOPATHIC ARTHRITIS
     Dosage: 70 GRAM, UNKNOWN
     Route: 042
  70. ADALIMUMAB [Suspect]
     Active Substance: ADALIMUMAB
     Indication: JUVENILE IDIOPATHIC ARTHRITIS
     Dosage: UNK
     Route: 058
  71. HYDROXYCHLOROQUINE [Suspect]
     Active Substance: HYDROXYCHLOROQUINE
     Indication: RHEUMATOID ARTHRITIS
     Route: 048
  72. HUMIRA [Suspect]
     Active Substance: ADALIMUMAB
     Indication: JUVENILE IDIOPATHIC ARTHRITIS
     Dosage: UNK
     Route: 058
  73. TRIAMCINOLONE HEXACETONIDE [Suspect]
     Active Substance: TRIAMCINOLONE HEXACETONIDE
     Indication: JUVENILE IDIOPATHIC ARTHRITIS
     Dosage: UNK
     Route: 050
  74. TRIAMCINOLONE HEXACETONIDE [Suspect]
     Active Substance: TRIAMCINOLONE HEXACETONIDE
     Indication: RHEUMATOID ARTHRITIS
     Dosage: UNK
     Route: 065

REACTIONS (44)
  - Arthropathy [Not Recovered/Not Resolved]
  - Therapy non-responder [Not Recovered/Not Resolved]
  - Adrenal insufficiency [Not Recovered/Not Resolved]
  - Rheumatoid arthritis [Not Recovered/Not Resolved]
  - Gastroenteritis viral [Not Recovered/Not Resolved]
  - Hypotension [Not Recovered/Not Resolved]
  - Liver function test abnormal [Not Recovered/Not Resolved]
  - Human antichimeric antibody positive [Not Recovered/Not Resolved]
  - Hypocalcaemia [Not Recovered/Not Resolved]
  - Juvenile idiopathic arthritis [Not Recovered/Not Resolved]
  - Loss of personal independence in daily activities [Not Recovered/Not Resolved]
  - Polyarthritis [Not Recovered/Not Resolved]
  - Drug ineffective [Not Recovered/Not Resolved]
  - Joint effusion [Not Recovered/Not Resolved]
  - Joint injury [Not Recovered/Not Resolved]
  - Psoriasis [Not Recovered/Not Resolved]
  - Arthritis [Not Recovered/Not Resolved]
  - Nausea [Not Recovered/Not Resolved]
  - Septic shock [Not Recovered/Not Resolved]
  - Bone density decreased [Not Recovered/Not Resolved]
  - Obesity [Not Recovered/Not Resolved]
  - Hypokalaemia [Not Recovered/Not Resolved]
  - Impaired quality of life [Not Recovered/Not Resolved]
  - Immunodeficiency [Not Recovered/Not Resolved]
  - Pleural effusion [Not Recovered/Not Resolved]
  - Condition aggravated [Not Recovered/Not Resolved]
  - Dizziness [Not Recovered/Not Resolved]
  - Body height below normal [Not Recovered/Not Resolved]
  - Synovitis [Not Recovered/Not Resolved]
  - Drug specific antibody present [Not Recovered/Not Resolved]
  - Human anti-human antibody test [Not Recovered/Not Resolved]
  - Vomiting [Not Recovered/Not Resolved]
  - Diarrhoea [Not Recovered/Not Resolved]
  - Wheelchair user [Not Recovered/Not Resolved]
  - Prescribed underdose [Not Recovered/Not Resolved]
  - Joint destruction [Not Recovered/Not Resolved]
  - Mobility decreased [Not Recovered/Not Resolved]
  - Pyrexia [Not Recovered/Not Resolved]
  - Therapeutic product effect decreased [Not Recovered/Not Resolved]
  - Loss of consciousness [Not Recovered/Not Resolved]
  - Red blood cell sedimentation rate increased [Not Recovered/Not Resolved]
  - C-reactive protein increased [Not Recovered/Not Resolved]
  - Drug intolerance [Not Recovered/Not Resolved]
  - Off label use [Not Recovered/Not Resolved]
